FAERS Safety Report 7621732-8 (Version None)
Quarter: 2011Q3

REPORT INFORMATION
  Report Type: 
  Country: None (occurrence: None)
  Receive Date: 20110719
  Receipt Date: 20110712
  Transmission Date: 20111222
  Serious: Yes (Hospitalization)
  Sender: FDA-Public Use
  Company Number: US-B.I. PHARMACEUTICALS,INC./RIDGEFIELD-2011-BP-17578BP

PATIENT
  Sex: Male

DRUGS (2)
  1. FLEXERIL [Concomitant]
     Indication: ARTHRITIS
     Route: 048
     Dates: start: 20090101, end: 20090101
  2. MOBIC [Suspect]
     Indication: ARTHRITIS
     Dosage: 7.5 MG
     Route: 048
     Dates: start: 20090101, end: 20090101

REACTIONS (2)
  - BODY TEMPERATURE DECREASED [None]
  - GASTROINTESTINAL HAEMORRHAGE [None]
